FAERS Safety Report 17589946 (Version 1)
Quarter: 2020Q1

REPORT INFORMATION
  Report Type: Spontaneous
  Country: US (occurrence: US)
  Receive Date: 20200327
  Receipt Date: 20200327
  Transmission Date: 20200409
  Serious: No
  Sender: FDA-Public Use
  Company Number: US-ALLERGAN-2009573US

PATIENT
  Sex: Female

DRUGS (2)
  1. LATISSE [Suspect]
     Active Substance: BIMATOPROST
     Indication: GROWTH OF EYELASHES
     Dosage: COUPLE OF DROPS APPLIED TO EACH INDIVIDUAL APPLICATOR THEN APPLIED TO UPPER EYELASH LINE NIGHTLY
     Route: 061
     Dates: end: 202001
  2. VITAMINS                           /00067501/ [Concomitant]
     Active Substance: VITAMINS

REACTIONS (1)
  - Drug ineffective [Unknown]
